FAERS Safety Report 19768980 (Version 1)
Quarter: 2021Q3

REPORT INFORMATION
  Report Type: Other
  Country: ES (occurrence: ES)
  Receive Date: 20210831
  Receipt Date: 20210831
  Transmission Date: 20211014
  Serious: Yes (Other)
  Sender: FDA-Public Use
  Company Number: ES-GUERBET-ES-20210058

PATIENT
  Age: 51 Year
  Sex: Male

DRUGS (6)
  1. DOTAREM [Suspect]
     Active Substance: GADOTERATE MEGLUMINE
     Indication: MAGNETIC RESONANCE IMAGING HEART
     Dosage: 0.15 MMOL/KG AT A FLOW OF 5 ML/S
     Route: 042
  2. RAPISCAN [Suspect]
     Active Substance: REGADENOSON
     Indication: MAGNETIC RESONANCE IMAGING HEART
     Route: 042
  3. AMINOPHYLLINE. [Concomitant]
     Active Substance: AMINOPHYLLINE
     Indication: HEART RATE INCREASED
     Route: 042
  4. METHYLPREDNISOLONE. [Concomitant]
     Active Substance: METHYLPREDNISOLONE
     Indication: PRODUCT USED FOR UNKNOWN INDICATION
     Route: 065
  5. ESMOLOL [Concomitant]
     Active Substance: ESMOLOL HYDROCHLORIDE
     Indication: PRODUCT USED FOR UNKNOWN INDICATION
     Route: 065
  6. DEXCHLORPHENIRAMINE [Concomitant]
     Active Substance: DEXCHLORPHENIRAMINE
     Indication: PRODUCT USED FOR UNKNOWN INDICATION
     Route: 065

REACTIONS (2)
  - Angina pectoris [Recovered/Resolved]
  - Urticaria [Recovered/Resolved]
